FAERS Safety Report 20592267 (Version 1)
Quarter: 2022Q1

REPORT INFORMATION
  Report Type: Spontaneous
  Country: US (occurrence: None)
  Receive Date: 20220314
  Receipt Date: 20220314
  Transmission Date: 20220423
  Serious: No
  Sender: FDA-Public Use
  Company Number: US-ROCHE-2854800

PATIENT

DRUGS (1)
  1. XOLAIR [Suspect]
     Active Substance: OMALIZUMAB
     Indication: Product used for unknown indication
     Route: 030

REACTIONS (4)
  - Incorrect route of product administration [Unknown]
  - Medication error [Unknown]
  - Muscle fatigue [Unknown]
  - Arthralgia [Unknown]
